FAERS Safety Report 15991374 (Version 1)
Quarter: 2019Q1

REPORT INFORMATION
  Report Type: Spontaneous
  Country: US (occurrence: US)
  Receive Date: 20190221
  Receipt Date: 20190221
  Transmission Date: 20190418
  Serious: No
  Sender: FDA-Public Use
  Company Number: US-BAYER-2019-036904

PATIENT

DRUGS (5)
  1. RITUXAN [Concomitant]
     Active Substance: RITUXIMAB
     Dosage: UNK
     Dates: start: 2015, end: 2016
  2. HUMIRA [Concomitant]
     Active Substance: ADALIMUMAB
     Dosage: UNK
     Dates: start: 2013, end: 2015
  3. METHOTREXATE. [Concomitant]
     Active Substance: METHOTREXATE
     Dosage: 1 DF
     Dates: start: 2014, end: 2016
  4. PREDNISONE. [Concomitant]
     Active Substance: PREDNISONE
     Dosage: UNK
     Dates: start: 20161031
  5. ALEVE [Suspect]
     Active Substance: NAPROXEN SODIUM
     Dosage: UNK

REACTIONS (1)
  - Drug hypersensitivity [Unknown]
